FAERS Safety Report 23931920 (Version 1)
Quarter: 2024Q2

REPORT INFORMATION
  Report Type: Report from Study
  Country: CA (occurrence: CA)
  Receive Date: 20240603
  Receipt Date: 20240603
  Transmission Date: 20240716
  Serious: Yes (Other)
  Sender: FDA-Public Use
  Company Number: CA-GLAXOSMITHKLINE-CA2024065782

PATIENT

DRUGS (2)
  1. MEPOLIZUMAB [Suspect]
     Active Substance: MEPOLIZUMAB
     Indication: Asthma
     Dosage: 100 MG, Q4W
     Route: 058
     Dates: start: 20190709
  2. ZENHALE [Concomitant]
     Active Substance: FORMOTEROL FUMARATE\MOMETASONE FUROATE
     Indication: Product used for unknown indication
     Dosage: 2 PUFF(S), BID, 200/10MCG AM+PM

REACTIONS (7)
  - Osteomyelitis [Unknown]
  - Sinus disorder [Unknown]
  - Sinus congestion [Unknown]
  - Secretion discharge [Unknown]
  - Vertigo [Not Recovered/Not Resolved]
  - Condition aggravated [Unknown]
  - Rhinalgia [Unknown]

NARRATIVE: CASE EVENT DATE: 20230901
